FAERS Safety Report 11363393 (Version 1)
Quarter: 2015Q3

REPORT INFORMATION
  Report Type: Spontaneous
  Country: IT (occurrence: IT)
  Receive Date: 20150811
  Receipt Date: 20150811
  Transmission Date: 20151125
  Serious: Yes (Hospitalization)
  Sender: FDA-Public Use
  Company Number: IT-ROCHE-1618619

PATIENT
  Age: 48 Year
  Sex: Female

DRUGS (3)
  1. RIVOTRIL [Suspect]
     Active Substance: CLONAZEPAM
     Indication: INTENTIONAL SELF-INJURY
     Dosage: 2.5 MG/ML ORAL DROPS, SOLUTION-10 ML BOTTLE
     Route: 048
     Dates: start: 20150723, end: 20150723
  2. GLICLAZIDE [Suspect]
     Active Substance: GLICLAZIDE
     Indication: INTENTIONAL SELF-INJURY
     Route: 048
     Dates: start: 20150723, end: 20150723
  3. CITALOPRAM [Suspect]
     Active Substance: CITALOPRAM HYDROBROMIDE
     Indication: INTENTIONAL SELF-INJURY
     Dosage: 20 MG FILM-COATED TABLETS-28 TABLETS
     Route: 048
     Dates: start: 20150723, end: 20150723

REACTIONS (2)
  - Drug abuse [Unknown]
  - Sopor [Recovering/Resolving]

NARRATIVE: CASE EVENT DATE: 20150723
